FAERS Safety Report 9184598 (Version 2)
Quarter: 2013Q2

REPORT INFORMATION
  Report Type: Spontaneous
  Country: JP (occurrence: JP)
  Receive Date: 20130324
  Receipt Date: 20130403
  Transmission Date: 20140414
  Serious: Yes (Hospitalization, Other)
  Sender: FDA-Public Use
  Company Number: JP-ROCHE-1197612

PATIENT
  Age: 76 Year
  Sex: Male
  Weight: 71 kg

DRUGS (9)
  1. XELODA [Suspect]
     Indication: COLORECTAL CANCER RECURRENT
     Dosage: IT IS ADMINISTER/ONE WEEKLY HOLIDAY MEDICINE FOR TWO WEEKS.
     Route: 048
     Dates: start: 20130213, end: 20130225
  2. ELPLAT [Interacting]
     Indication: COLORECTAL CANCER RECURRENT
     Route: 041
     Dates: start: 20130213, end: 20130220
  3. WARFARIN [Interacting]
     Indication: PRODUCT USED FOR UNKNOWN INDICATION
     Route: 048
     Dates: end: 20130220
  4. VITAMEDIN (JAPAN) [Concomitant]
     Route: 048
     Dates: end: 20130220
  5. REMINYL [Concomitant]
     Route: 048
  6. OMEPRAZON [Concomitant]
     Route: 048
     Dates: end: 20130220
  7. DIOVAN [Concomitant]
     Indication: HYPERTENSION
     Route: 048
     Dates: end: 20130220
  8. LIPITOR [Concomitant]
     Indication: HYPERLIPIDAEMIA
     Route: 048
     Dates: end: 20130220
  9. ANPLAG [Concomitant]
     Route: 048
     Dates: end: 20130220

REACTIONS (6)
  - Stomatitis [Recovering/Resolving]
  - Diarrhoea [Recovering/Resolving]
  - Dehydration [Unknown]
  - Mouth haemorrhage [Unknown]
  - Aphagia [Unknown]
  - Drug interaction [Unknown]
